FAERS Safety Report 9370975 (Version 5)
Quarter: 2013Q3

REPORT INFORMATION
  Report Type: Report from Study
  Country: GB (occurrence: GB)
  Receive Date: 20130627
  Receipt Date: 20130912
  Transmission Date: 20140515
  Serious: Yes (Hospitalization)
  Sender: FDA-Public Use
  Company Number: GB-ROCHE-1238877

PATIENT
  Age: 53 Year
  Sex: Female
  Weight: 47.5 kg

DRUGS (8)
  1. TRASTUZUMAB EMTANSINE [Suspect]
     Indication: BREAST CANCER METASTATIC
     Dosage: THE LAST DOSE PRIOR TO THE EVENT WAS ON 30/MAY/2013.
     Route: 042
     Dates: start: 20130509, end: 20130711
  2. SANDO-K [Concomitant]
     Route: 065
     Dates: start: 20130620, end: 20130621
  3. OMEPRAZOLE [Concomitant]
     Route: 065
  4. CO-CODAMOL [Concomitant]
     Dosage: TOTAL DAILY DOSE: 120/2000 MG.
     Route: 065
  5. DEXAMETHASONE [Concomitant]
     Route: 065
  6. ORAMORPH [Concomitant]
     Route: 065
  7. PARACETAMOL [Concomitant]
     Route: 065
     Dates: start: 20130530
  8. DOMPERIDONE [Concomitant]
     Route: 065
     Dates: start: 20130510

REACTIONS (1)
  - Lung infection [Recovered/Resolved with Sequelae]
